FAERS Safety Report 5463902-3 (Version None)
Quarter: 2007Q3

REPORT INFORMATION
  Report Type: 
  Country: None (occurrence: None)
  Receive Date: 20070814
  Receipt Date: 20070227
  Transmission Date: 20080115
  Serious: Yes (Hospitalization)
  Sender: FDA-Public Use
  Company Number: MEDI-0005470

PATIENT
  Age: 6 Month
  Sex: Female
  Weight: 7.2576 kg

DRUGS (4)
  1. SYNAGIS [Suspect]
     Indication: ANTIVIRAL PROPHYLAXIS
     Dosage: 1 IN 1 M, INTRAMUSCULAR
     Route: 030
     Dates: start: 20061120, end: 20070119
  2. SYNAGIS [Suspect]
     Dates: start: 20061120
  3. SYNAGIS [Suspect]
     Dates: start: 20061218
  4. SYNAGIS [Suspect]
     Dates: start: 20070219

REACTIONS (11)
  - BRONCHIOLITIS [None]
  - COUGH [None]
  - IRRITABILITY [None]
  - NASAL CONGESTION [None]
  - ORAL INTAKE REDUCED [None]
  - POOR QUALITY SLEEP [None]
  - RESPIRATORY DISTRESS [None]
  - RESPIRATORY SYNCYTIAL VIRUS INFECTION [None]
  - RETCHING [None]
  - RHINORRHOEA [None]
  - WHEEZING [None]
